FAERS Safety Report 24467111 (Version 1)
Quarter: 2024Q4

REPORT INFORMATION
  Report Type: Report from Study
  Country: US (occurrence: US)
  Receive Date: 20241018
  Receipt Date: 20241018
  Transmission Date: 20250115
  Serious: No
  Sender: ROCHE
  Company Number: US-ROCHE-3565323

PATIENT
  Age: 15 Year
  Sex: Female
  Weight: 87.09 kg

DRUGS (13)
  1. XOLAIR [Suspect]
     Active Substance: OMALIZUMAB
     Indication: Asthma
     Route: 058
     Dates: start: 20240419
  2. ALBUTEROL [Concomitant]
     Active Substance: ALBUTEROL
  3. ATROVENT [Concomitant]
     Active Substance: IPRATROPIUM BROMIDE
  4. CARBINOXAMINE [Concomitant]
     Active Substance: CARBINOXAMINE
  5. DIPHENHIST [Concomitant]
     Active Substance: DIPHENHYDRAMINE HYDROCHLORIDE
  6. DULERA [Concomitant]
     Active Substance: FORMOTEROL FUMARATE DIHYDRATE\MOMETASONE FUROATE
  7. IBUPROFEN [Concomitant]
     Active Substance: IBUPROFEN
  8. IPRATROPIUM [Concomitant]
     Active Substance: IPRATROPIUM
  9. MELATONIN [Concomitant]
     Active Substance: MELATONIN
  10. PANTOPRAZOLE [Concomitant]
     Active Substance: PANTOPRAZOLE
  11. THEOPHYLLINE [Concomitant]
     Active Substance: THEOPHYLLINE
  12. VENTOLIN [Concomitant]
     Active Substance: ALBUTEROL SULFATE
  13. VITAMIN D3 [Concomitant]
     Active Substance: CHOLECALCIFEROL

REACTIONS (2)
  - Off label use [Unknown]
  - No adverse event [Unknown]
